FAERS Safety Report 21158331 (Version 2)
Quarter: 2022Q3

REPORT INFORMATION
  Report Type: Spontaneous
  Country: JP (occurrence: JP)
  Receive Date: 20220801
  Receipt Date: 20220918
  Transmission Date: 20221026
  Serious: Yes (Death, Hospitalization, Other)
  Sender: FDA-Public Use
  Company Number: JP-CHUGAI-2022029360

PATIENT
  Age: 79 Year
  Sex: Female
  Weight: 55.2 kg

DRUGS (9)
  1. TECENTRIQ [Suspect]
     Active Substance: ATEZOLIZUMAB
     Indication: Hepatocellular carcinoma
     Dosage: 1200 MILLIGRAM, MOST RECENT DOSE ADMINISTERED ON //2022
     Route: 041
     Dates: start: 20220113
  2. AVASTIN [Suspect]
     Active Substance: BEVACIZUMAB
     Indication: Hepatocellular carcinoma
     Dosage: 880 MILLIGRAM, MOST RECENT DOSE ADMINISTERED ON //2022
     Route: 041
     Dates: start: 20220113
  3. EDOXABAN TOSYLATE [Concomitant]
     Active Substance: EDOXABAN TOSYLATE
     Route: 065
  4. DAPAGLIFLOZIN [Concomitant]
     Active Substance: DAPAGLIFLOZIN
     Route: 065
  5. URSODIOL [Concomitant]
     Active Substance: URSODIOL
     Route: 065
  6. SPIRONOLACTONE [Concomitant]
     Active Substance: SPIRONOLACTONE
     Route: 065
  7. SHAKUYAKUKANZOTO [Concomitant]
     Active Substance: HERBALS
     Route: 065
  8. MAGNESIUM OXIDE [Concomitant]
     Active Substance: MAGNESIUM OXIDE
     Dosage: UNK
     Route: 065
  9. FAMOTIDINE [Concomitant]
     Active Substance: FAMOTIDINE
     Route: 065

REACTIONS (9)
  - Myositis [Fatal]
  - Rhabdomyolysis [Fatal]
  - Liver disorder [Fatal]
  - Renal disorder [Fatal]
  - Non-cardiogenic pulmonary oedema [Fatal]
  - Multiple organ dysfunction syndrome [Unknown]
  - Hepatic encephalopathy [Unknown]
  - Hypothyroidism [Unknown]
  - Constipation [Unknown]

NARRATIVE: CASE EVENT DATE: 20220620
